FAERS Safety Report 19212114 (Version 1)
Quarter: 2021Q2

REPORT INFORMATION
  Report Type: Spontaneous
  Country: US (occurrence: US)
  Receive Date: 20210504
  Receipt Date: 20210504
  Transmission Date: 20210717
  Serious: Yes (Death)
  Sender: FDA-Public Use
  Company Number: None

PATIENT
  Age: 86 Year
  Sex: Male

DRUGS (10)
  1. OCTREOTIDE 100MCG/ML SYR [Suspect]
     Active Substance: OCTREOTIDE
     Indication: GASTROINTESTINAL VASCULAR MALFORMATION HAEMORRHAGIC
     Route: 058
  2. GABAPENTIN. [Concomitant]
     Active Substance: GABAPENTIN
  3. PROTONIX [Concomitant]
     Active Substance: PANTOPRAZOLE SODIUM
  4. ASPIRIN. [Concomitant]
     Active Substance: ASPIRIN
  5. METOPROL SUC [Concomitant]
  6. FERROUS SULF [Concomitant]
     Active Substance: FERROUS SULFATE
  7. NORVASC [Concomitant]
     Active Substance: AMLODIPINE BESYLATE
  8. SENNA LAXATIVE [Concomitant]
     Active Substance: SENNOSIDES
  9. ISOSORB DIN [Concomitant]
     Active Substance: ISOSORBIDE DINITRATE
  10. LUMIGAN [Concomitant]
     Active Substance: BIMATOPROST

REACTIONS (1)
  - Death [None]

NARRATIVE: CASE EVENT DATE: 20210409
